FAERS Safety Report 4305905-8 (Version None)
Quarter: 2004Q1

REPORT INFORMATION
  Report Type: 
  Country: None (occurrence: None)
  Receive Date: 20040226
  Receipt Date: 20040219
  Transmission Date: 20041129
  Serious: Yes (Life-Threatening, Hospitalization)
  Sender: FDA-Public Use
  Company Number: WAES 0402GBR00202

PATIENT
  Age: 79 Year
  Sex: Female

DRUGS (10)
  1. AMILORIDE HYDROCHLORIDE AND FUROSEMIDE [Concomitant]
     Route: 048
     Dates: end: 20040101
  2. AMILORIDE HYDROCHLORIDE AND FUROSEMIDE [Concomitant]
     Route: 048
     Dates: start: 20040101
  3. ASPIRIN [Concomitant]
     Route: 048
     Dates: end: 20040127
  4. CALCIUM CARBONATE AND CHOLECALCIFEROL [Concomitant]
     Route: 048
     Dates: end: 20040101
  5. CALCIUM CARBONATE AND CHOLECALCIFEROL [Concomitant]
     Route: 048
     Dates: start: 20040101
  6. LEVOTHYROXINE SODIUM [Concomitant]
     Route: 048
     Dates: end: 20040101
  7. LEVOTHYROXINE SODIUM [Concomitant]
     Route: 048
     Dates: start: 20040101
  8. VIOXX [Suspect]
     Indication: OSTEOARTHRITIS
     Route: 048
     Dates: end: 20040127
  9. TOLTERODINE [Concomitant]
     Route: 048
     Dates: end: 20040101
  10. TOLTERODINE [Concomitant]
     Route: 048
     Dates: start: 20040101

REACTIONS (3)
  - GASTRIC ULCER [None]
  - HAEMATEMESIS [None]
  - MELAENA [None]
